FAERS Safety Report 5910228-7 (Version None)
Quarter: 2008Q4

REPORT INFORMATION
  Report Type: 
  Country: None (occurrence: None)
  Receive Date: 20081007
  Receipt Date: 20071024
  Transmission Date: 20090506
  Serious: Yes (Other)
  Sender: FDA-Public Use
  Company Number: US-ASTRAZENECA-2007UW24642

PATIENT
  Age: 70 Year
  Sex: Female
  Weight: 72.6 kg

DRUGS (3)
  1. ARIMIDEX [Suspect]
     Indication: BREAST CANCER FEMALE
     Route: 048
     Dates: start: 20041001
  2. METFORMIN HCL [Concomitant]
  3. GLYPAZIDE [Concomitant]

REACTIONS (1)
  - MYOCARDIAL INFARCTION [None]
